FAERS Safety Report 5597270-3 (Version None)
Quarter: 2008Q1

REPORT INFORMATION
  Report Type: 
  Country: None (occurrence: None)
  Receive Date: 20080121
  Receipt Date: 20080109
  Transmission Date: 20080703
  Serious: Yes (Other)
  Sender: FDA-Public Use
  Company Number: JP-PURDUE-MAG_2007_0000619

PATIENT
  Age: 88 Year
  Sex: Male

DRUGS (13)
  1. CATABON [Concomitant]
     Indication: CARDIAC FAILURE
     Dosage: 200 ML, DAILY
     Route: 042
     Dates: start: 20050625, end: 20050703
  2. OXYCODONE HCL [Suspect]
     Indication: CANCER PAIN
     Dosage: 10 MG, BID
     Route: 048
     Dates: start: 20050806, end: 20050813
  3. OXYCODONE HCL [Suspect]
     Dosage: 20 MG, BID
     Route: 048
     Dates: start: 20050706, end: 20050806
  4. OXYCODONE HCL [Suspect]
     Dosage: 10 MG, BID
     Route: 048
     Dates: start: 20050621, end: 20050706
  5. OXYCODONE HCL [Suspect]
     Dosage: 5 MG, BID
     Route: 048
     Dates: start: 20050618, end: 20050621
  6. OXYCODONE HCL [Suspect]
     Dosage: 5 MG, DAILY
     Route: 048
     Dates: start: 20050621, end: 20050621
  7. OXYCODONE HCL [Suspect]
     Dosage: 20 MG, DAILY
     Route: 048
     Dates: start: 20050806, end: 20050806
  8. OXYCODONE HCL [Suspect]
     Dosage: 10 MG, DAILY
     Route: 048
     Dates: start: 20050706, end: 20050706
  9. PANTOSIN [Concomitant]
     Indication: CONSTIPATION PROPHYLAXIS
     Dosage: 2 GRAM, DAILY
     Route: 048
     Dates: start: 20050618, end: 20050813
  10. RIZE [Concomitant]
     Indication: INSOMNIA
     Dosage: 10 MG, DAILY
     Route: 048
     Dates: start: 20050617, end: 20050813
  11. MUCOSTA [Concomitant]
     Indication: PROPHYLAXIS AGAINST GASTROINTESTINAL ULCER
     Dosage: 300 MG, DAILY
     Route: 048
     Dates: start: 20050614, end: 20050813
  12. NAPROXEN [Concomitant]
     Indication: CANCER PAIN
     Dosage: 300 MG, DAILY
     Route: 048
     Dates: start: 20050614, end: 20050813
  13. MORPHINE HCL ELIXIR [Concomitant]
     Indication: CANCER PAIN
     Dosage: 15 MG, DAILY
     Route: 048
     Dates: start: 20050614, end: 20050813

REACTIONS (3)
  - ANOREXIA [None]
  - CARDIAC FAILURE [None]
  - NAUSEA [None]
